FAERS Safety Report 24402665 (Version 1)
Quarter: 2024Q4

REPORT INFORMATION
  Report Type: Report from Study
  Country: IN (occurrence: IN)
  Receive Date: 20241007
  Receipt Date: 20241007
  Transmission Date: 20250115
  Serious: Yes (Other)
  Sender: ROCHE
  Company Number: IN-002147023-NVSC2024IN194192

PATIENT
  Age: 67 Year
  Sex: Male
  Weight: 62 kg

DRUGS (2)
  1. RANIBIZUMAB [Suspect]
     Active Substance: RANIBIZUMAB
     Indication: Choroidal neovascularisation
     Dosage: 0.05 MG, QMO
     Route: 050
     Dates: start: 20240227, end: 20240516
  2. RANIBIZUMAB [Suspect]
     Active Substance: RANIBIZUMAB
     Indication: Neovascular age-related macular degeneration

REACTIONS (6)
  - Cataract [Unknown]
  - Angle closure glaucoma [Unknown]
  - Subretinal fluid [Unknown]
  - Choroidal neovascularisation [Unknown]
  - Disease recurrence [Unknown]
  - Retinal depigmentation [Unknown]
